FAERS Safety Report 25879401 (Version 1)
Quarter: 2025Q4

REPORT INFORMATION
  Report Type: Spontaneous
  Country: US (occurrence: US)
  Receive Date: 20251003
  Receipt Date: 20251003
  Transmission Date: 20260118
  Serious: Yes (Hospitalization, Other)
  Sender: AMGEN
  Company Number: US-AMGEN-USASP2025190850

PATIENT

DRUGS (1)
  1. PREDNISONE [Suspect]
     Active Substance: PREDNISONE
     Indication: IgA nephropathy
     Dosage: UNK
     Route: 065

REACTIONS (18)
  - Gastrointestinal haemorrhage [Unknown]
  - Infection [Unknown]
  - Diabetes mellitus [Unknown]
  - Renal failure [Unknown]
  - Glaucoma [Unknown]
  - Upper respiratory tract infection [Unknown]
  - Fracture [Unknown]
  - Arthralgia [Unknown]
  - Dyspnoea [Unknown]
  - Fatigue [Unknown]
  - Oedema peripheral [Unknown]
  - Face oedema [Unknown]
  - White blood cell count increased [Unknown]
  - Dermatitis [Unknown]
  - Dyspepsia [Unknown]
  - Hypertension [Unknown]
  - Acne [Unknown]
  - Weight increased [Unknown]
